FAERS Safety Report 7692703-0 (Version None)
Quarter: 2011Q3

REPORT INFORMATION
  Report Type: 
  Country: None (occurrence: None)
  Receive Date: 20110819
  Receipt Date: 20110809
  Transmission Date: 20111222
  Serious: Yes (Hospitalization)
  Sender: FDA-Public Use
  Company Number: DE-ASTRAZENECA-2011SE43639

PATIENT
  Age: 29607 Day
  Sex: Male
  Weight: 80 kg

DRUGS (15)
  1. IRESSA [Suspect]
     Indication: NON-SMALL CELL LUNG CANCER
     Route: 048
     Dates: start: 20101005, end: 20110718
  2. CALCIUM CARBONATE [Concomitant]
     Indication: MINERAL SUPPLEMENTATION
     Route: 048
  3. TORSEMIDE [Concomitant]
     Indication: DIURETIC THERAPY
     Route: 048
     Dates: end: 20110718
  4. MG VERLA T [Concomitant]
     Indication: MINERAL SUPPLEMENTATION
     Route: 048
     Dates: end: 20110718
  5. LEVOTHYROXINE SODIUM [Concomitant]
     Indication: HYPOTHYROIDISM
     Route: 048
  6. NOVALGIN [Concomitant]
     Indication: PAIN
     Route: 048
  7. PANTOPRAZOLE [Concomitant]
     Indication: GASTROINTESTINAL DISORDER
     Route: 048
  8. PASPERTIN [Concomitant]
     Indication: VOMITING
  9. ZOLPIDEM [Concomitant]
     Indication: INSOMNIA
  10. BUDENOFALK [Concomitant]
     Indication: CROHN'S DISEASE
     Route: 048
  11. ERGOCALCIFEROL [Concomitant]
     Indication: VITAMIN SUPPLEMENTATION
     Route: 048
  12. PREDNISONE [Concomitant]
     Indication: DYSPNOEA
     Route: 055
     Dates: start: 20110707, end: 20110715
  13. FENTORA [Concomitant]
     Indication: PAIN
  14. KALIUM RETARD [Concomitant]
     Indication: MINERAL SUPPLEMENTATION
     Route: 048
  15. ZOFRAN [Concomitant]
     Indication: VOMITING

REACTIONS (2)
  - RENAL FAILURE ACUTE [None]
  - PNEUMONIA [None]
